FAERS Safety Report 8445560 (Version 2)
Quarter: 2012Q4

REPORT INFORMATION
  Report Type: 
  Country: BR (occurrence: BR)
  Receive Date: 20120307
  Receipt Date: 20121005
  Transmission Date: 20130627
  Serious: Yes (Other)
  Sender: FDA-Public Use
  Company Number: BR-ASTRAZENECA-2012SE14006

PATIENT
  Age: 55 Year
  Sex: Female
  Weight: 44 kg

DRUGS (2)
  1. BRILINTA [Suspect]
     Route: 048
     Dates: start: 201111
  2. DIOVAN [Concomitant]
     Indication: HYPERTENSION

REACTIONS (1)
  - Cerebrovascular accident [Recovering/Resolving]
